FAERS Safety Report 25379621 (Version 1)
Quarter: 2025Q2

REPORT INFORMATION
  Report Type: Spontaneous
  Country: US (occurrence: None)
  Receive Date: 20250529
  Receipt Date: 20250529
  Transmission Date: 20250717
  Serious: Yes (Other)
  Sender: FDA-CTU
  Company Number: None

PATIENT
  Age: 53 Year
  Sex: Male

DRUGS (2)
  1. VUEWAY [Suspect]
     Active Substance: GADOPICLENOL
     Indication: Hepatic cirrhosis
     Route: 040
  2. VUEWAY [Suspect]
     Active Substance: GADOPICLENOL
     Indication: Liver function test increased

REACTIONS (3)
  - Urticaria [None]
  - Rash [None]
  - Contrast media reaction [None]

NARRATIVE: CASE EVENT DATE: 20250529
